FAERS Safety Report 26069419 (Version 1)
Quarter: 2025Q4

REPORT INFORMATION
  Report Type: Spontaneous
  Country: EU (occurrence: EU)
  Receive Date: 20251120
  Receipt Date: 20251120
  Transmission Date: 20260118
  Serious: Yes (Other)
  Sender: BAUSCH AND LOMB
  Company Number: EU-EMB-M202401273-1

PATIENT
  Age: 30 Year
  Sex: Female
  Weight: 60 kg

DRUGS (3)
  1. AZATHIOPRINE [Suspect]
     Active Substance: AZATHIOPRINE
     Indication: Autoimmune hepatitis
     Dosage: GW 0-32: 100 MG/D (0-1-0)
     Route: 048
     Dates: start: 202309, end: 202404
  2. AZATHIOPRINE [Suspect]
     Active Substance: AZATHIOPRINE
     Dosage: GW 32 UNTIL DELIVERY: 125 MG/D (75 MG-0-50 MG)
     Route: 048
     Dates: start: 202404, end: 202405
  3. URSODIOL [Suspect]
     Active Substance: URSODIOL
     Indication: Cholestasis of pregnancy
     Dosage: GW 31-32
     Route: 048
     Dates: start: 202404, end: 202404

REACTIONS (3)
  - Stillbirth [Recovered/Resolved]
  - Premature labour [Unknown]
  - Exposure during pregnancy [Unknown]

NARRATIVE: CASE EVENT DATE: 20240501
